FAERS Safety Report 9833018 (Version 1)
Quarter: 2014Q1

REPORT INFORMATION
  Report Type: Spontaneous
  Country: CN (occurrence: CN)
  Receive Date: 20140121
  Receipt Date: 20140121
  Transmission Date: 20141002
  Serious: Yes (Other)
  Sender: FDA-Public Use
  Company Number: CN-PFIZER INC-2014016043

PATIENT
  Sex: 0
  Weight: 2.7 kg

DRUGS (1)
  1. HEMABATE [Suspect]
     Dosage: HALF A BOTTLE (1ML/BOTTLE)
     Route: 042

REACTIONS (3)
  - Drug administration error [Recovered/Resolved]
  - Vasoconstriction [Recovered/Resolved]
  - Lividity [Recovered/Resolved]
